FAERS Safety Report 8178390-6 (Version None)
Quarter: 2012Q1

REPORT INFORMATION
  Report Type: 
  Country: None (occurrence: None)
  Receive Date: 20120301
  Receipt Date: 20120222
  Transmission Date: 20120608
  Serious: No
  Sender: FDA-Public Use
  Company Number: US-B.I. PHARMACEUTICALS,INC./RIDGEFIELD-2012-BP-03440BP

PATIENT
  Sex: Male

DRUGS (1)
  1. SPIRIVA [Suspect]
     Dates: start: 20070101, end: 20120125

REACTIONS (4)
  - APHONIA [None]
  - DYSPHAGIA [None]
  - DRY MOUTH [None]
  - WEIGHT DECREASED [None]
